FAERS Safety Report 9434576 (Version 4)
Quarter: 2014Q4

REPORT INFORMATION
  Report Type: Report from Study
  Country: AU (occurrence: AU)
  Receive Date: 20130801
  Receipt Date: 20141219
  Transmission Date: 20150529
  Serious: Yes (Hospitalization, Other)
  Sender: FDA-Public Use
  Company Number: AU-ASTRAZENECA-2013SE50932

PATIENT
  Age: 932 Month
  Sex: Male

DRUGS (2)
  1. COSUDEX [Concomitant]
     Active Substance: BICALUTAMIDE
     Route: 048
  2. ZOLADEX [Suspect]
     Active Substance: GOSERELIN ACETATE
     Indication: PROSTATE CANCER
     Route: 058
     Dates: start: 1999

REACTIONS (13)
  - Urinary bladder polyp [Unknown]
  - Hot flush [Not Recovered/Not Resolved]
  - Asthenia [Not Recovered/Not Resolved]
  - Epididymitis [Unknown]
  - Pleural effusion [Not Recovered/Not Resolved]
  - Bladder diverticulum [Unknown]
  - Hernia [Unknown]
  - Intentional product misuse [Unknown]
  - Bladder cancer [Unknown]
  - Haemoglobin decreased [Unknown]
  - Urinary bladder haemorrhage [Not Recovered/Not Resolved]
  - Malignant neoplasm progression [Unknown]
  - Blood testosterone decreased [Unknown]

NARRATIVE: CASE EVENT DATE: 201101
